FAERS Safety Report 21208714 (Version 13)
Quarter: 2024Q4

REPORT INFORMATION
  Report Type: Report from Study
  Country: JP (occurrence: JP)
  Receive Date: 20220812
  Receipt Date: 20241101
  Transmission Date: 20250114
  Serious: Yes (Hospitalization, Other)
  Sender: ALNYLAM PHARMACEUTICALS
  Company Number: JP-ALNYLAM PHARMACEUTICALS, INC.-ALN-2022-002701

PATIENT

DRUGS (69)
  1. ONPATTRO [Suspect]
     Active Substance: PATISIRAN SODIUM
     Indication: Hereditary neuropathic amyloidosis
     Dosage: 21.3 MILLIGRAM
     Route: 041
     Dates: start: 20191025, end: 20191025
  2. ONPATTRO [Suspect]
     Active Substance: PATISIRAN SODIUM
     Dosage: 20.1 MILLIGRAM
     Route: 041
     Dates: start: 20191113, end: 20191223
  3. ONPATTRO [Suspect]
     Active Substance: PATISIRAN SODIUM
     Dosage: 19.5 MILLIGRAM
     Route: 041
     Dates: start: 20200110, end: 20200110
  4. ONPATTRO [Suspect]
     Active Substance: PATISIRAN SODIUM
     Dosage: 20.1 MILLIGRAM
     Route: 041
     Dates: start: 20200214, end: 20200214
  5. ONPATTRO [Suspect]
     Active Substance: PATISIRAN SODIUM
     Dosage: 20.4 MILLIGRAM
     Route: 041
     Dates: start: 20200306, end: 20200306
  6. ONPATTRO [Suspect]
     Active Substance: PATISIRAN SODIUM
     Dosage: 19.8 MILLIGRAM
     Route: 041
     Dates: start: 20200330, end: 20200330
  7. ONPATTRO [Suspect]
     Active Substance: PATISIRAN SODIUM
     Dosage: 20.4 MILLIGRAM
     Route: 041
     Dates: start: 20200420, end: 20200420
  8. ONPATTRO [Suspect]
     Active Substance: PATISIRAN SODIUM
     Dosage: 20.1 MILLIGRAM
     Route: 041
     Dates: start: 20200511, end: 20200511
  9. ONPATTRO [Suspect]
     Active Substance: PATISIRAN SODIUM
     Dosage: 20.7 MILLIGRAM
     Route: 041
     Dates: start: 20200601, end: 20200601
  10. ONPATTRO [Suspect]
     Active Substance: PATISIRAN SODIUM
     Dosage: 20.1 MILLIGRAM
     Route: 041
     Dates: start: 20200622, end: 20200622
  11. ONPATTRO [Suspect]
     Active Substance: PATISIRAN SODIUM
     Dosage: 19.5 MILLIGRAM
     Route: 041
     Dates: start: 20200713, end: 20200713
  12. ONPATTRO [Suspect]
     Active Substance: PATISIRAN SODIUM
     Dosage: 19.8 MILLIGRAM
     Route: 041
     Dates: start: 20200803, end: 20200803
  13. ONPATTRO [Suspect]
     Active Substance: PATISIRAN SODIUM
     Dosage: 19.2 MILLIGRAM
     Route: 041
     Dates: start: 20200824, end: 20200824
  14. ONPATTRO [Suspect]
     Active Substance: PATISIRAN SODIUM
     Dosage: 19.5 MILLIGRAM
     Route: 041
     Dates: start: 20200914, end: 20200914
  15. ONPATTRO [Suspect]
     Active Substance: PATISIRAN SODIUM
     Dosage: 20.1 MILLIGRAM
     Route: 041
     Dates: start: 20201005, end: 20201026
  16. ONPATTRO [Suspect]
     Active Substance: PATISIRAN SODIUM
     Dosage: 21.0 MILLIGRAM
     Route: 041
     Dates: start: 20201116, end: 20201116
  17. ONPATTRO [Suspect]
     Active Substance: PATISIRAN SODIUM
     Dosage: 20.4 MILLIGRAM
     Route: 041
     Dates: start: 20201207, end: 20201207
  18. ONPATTRO [Suspect]
     Active Substance: PATISIRAN SODIUM
     Dosage: 19.2 MILLIGRAM
     Route: 041
     Dates: start: 20201228, end: 20210118
  19. ONPATTRO [Suspect]
     Active Substance: PATISIRAN SODIUM
     Dosage: 19.8 MILLIGRAM
     Route: 041
     Dates: start: 20210208, end: 20210301
  20. ONPATTRO [Suspect]
     Active Substance: PATISIRAN SODIUM
     Dosage: 20.4 MILLIGRAM
     Route: 041
     Dates: start: 20210322, end: 20210322
  21. ONPATTRO [Suspect]
     Active Substance: PATISIRAN SODIUM
     Dosage: 20.7 MILLIGRAM
     Route: 041
     Dates: start: 20210412, end: 20210412
  22. ONPATTRO [Suspect]
     Active Substance: PATISIRAN SODIUM
     Dosage: 18.0 MILLIGRAM
     Route: 041
     Dates: start: 20220105, end: 20220105
  23. ONPATTRO [Suspect]
     Active Substance: PATISIRAN SODIUM
     Dosage: 18.3 MILLIGRAM
     Route: 041
     Dates: start: 20220126, end: 20220601
  24. ONPATTRO [Suspect]
     Active Substance: PATISIRAN SODIUM
     Dosage: 18.9 MILLIGRAM
     Route: 041
     Dates: start: 20220622, end: 20220622
  25. ONPATTRO [Suspect]
     Active Substance: PATISIRAN SODIUM
     Dosage: 18.3 MILLIGRAM
     Route: 041
     Dates: start: 20220713, end: 20220803
  26. ONPATTRO [Suspect]
     Active Substance: PATISIRAN SODIUM
     Dosage: 18.6 MILLIGRAM
     Route: 041
     Dates: start: 20220824, end: 20221116
  27. GASTER [Concomitant]
     Active Substance: FAMOTIDINE
     Indication: Prophylaxis
     Dosage: 20 MILLIGRAM, SINGLE
     Route: 065
     Dates: start: 20190125, end: 20191025
  28. POLARAMINE [Concomitant]
     Active Substance: DEXCHLORPHENIRAMINE MALEATE
     Indication: Prophylaxis
     Dosage: 5 MILLIGRAM, SINGLE
     Route: 065
     Dates: start: 20191025, end: 20191025
  29. DEXAMETHASONE SODIUM PHOSPHATE [Concomitant]
     Active Substance: DEXAMETHASONE SODIUM PHOSPHATE
     Indication: Prophylaxis
     Dosage: 10 MILLIGRAM, SINGLE
     Route: 065
     Dates: start: 20191025, end: 20191025
  30. DEXAMETHASONE SODIUM PHOSPHATE [Concomitant]
     Active Substance: DEXAMETHASONE SODIUM PHOSPHATE
     Dosage: 9.9 MILLIGRAM, SINGLE
     Route: 065
     Dates: start: 20191113
  31. DEXAMETHASONE SODIUM PHOSPHATE [Concomitant]
     Active Substance: DEXAMETHASONE SODIUM PHOSPHATE
     Dosage: 9.9 MILLIGRAM, SINGLE
     Route: 065
     Dates: start: 20220105, end: 20221116
  32. ACETAMINOPHEN [Concomitant]
     Active Substance: ACETAMINOPHEN
     Indication: Prophylaxis
     Dosage: 500 MILLIGRAM, SINGLE
     Route: 065
     Dates: start: 20191025
  33. ACETAMINOPHEN [Concomitant]
     Active Substance: ACETAMINOPHEN
     Dosage: 500 MILLIGRAM, SINGLE
     Route: 065
     Dates: start: 20220105, end: 20221116
  34. CHLORPHENIRAMINE MALEATE [Concomitant]
     Active Substance: CHLORPHENIRAMINE MALEATE
     Indication: Prophylaxis
     Dosage: 5 MILLIGRAM, SINGLE
     Route: 065
     Dates: start: 20191113
  35. CHLORPHENIRAMINE MALEATE [Concomitant]
     Active Substance: CHLORPHENIRAMINE MALEATE
     Dosage: 5 MILLIGRAM, SINGLE
     Route: 065
     Dates: start: 20220105, end: 20221116
  36. FAMOTIDINE [Concomitant]
     Active Substance: FAMOTIDINE
     Indication: Prophylaxis
     Dosage: 20 MILLIGRAM, SINGLE
     Route: 065
     Dates: start: 20191113
  37. FAMOTIDINE [Concomitant]
     Active Substance: FAMOTIDINE
     Dosage: 20 MILLIGRAM, SINGLE
     Route: 065
     Dates: start: 20220105, end: 20221116
  38. VITAMINS [Concomitant]
     Active Substance: VITAMINS
     Indication: Vitamin supplementation
     Dosage: 1 GRAM, QD
     Route: 048
     Dates: start: 20191025, end: 20210728
  39. VITAMINS [Concomitant]
     Active Substance: VITAMINS
     Dosage: 1 GRAM, QD
     Route: 048
     Dates: start: 20220105
  40. CALCIUM POLYCARBOPHIL [Concomitant]
     Active Substance: CALCIUM POLYCARBOPHIL
     Indication: Hereditary neuropathic amyloidosis
     Dosage: 500 MILLIGRAM, TID
     Route: 048
  41. HERBALS [Concomitant]
     Active Substance: HERBALS
     Indication: Hereditary neuropathic amyloidosis
     Dosage: 2.5 GRAM, TID
     Route: 065
  42. HERBALS [Concomitant]
     Active Substance: HERBALS
     Indication: Pollakiuria
  43. FEBUXOSTAT [Concomitant]
     Active Substance: FEBUXOSTAT
     Indication: Hyperuricaemia
     Dosage: 10 MILLIGRAM, QD
     Route: 048
  44. SODIUM FERROUS CITRATE [Concomitant]
     Active Substance: SODIUM FERROUS CITRATE
     Indication: Iron deficiency anaemia
     Dosage: 50 MILLIGRAM, QD
     Route: 048
  45. DROXIDOPA [Concomitant]
     Active Substance: DROXIDOPA
     Indication: Hereditary neuropathic amyloidosis
     Dosage: 200 MILLIGRAM, TID
     Route: 048
  46. DROXIDOPA [Concomitant]
     Active Substance: DROXIDOPA
     Indication: Hereditary neuropathic amyloidosis
     Dosage: 100 MILLIGRAM, TID
     Route: 048
  47. PROGRAF [Concomitant]
     Active Substance: TACROLIMUS
     Indication: Prophylaxis against transplant rejection
     Dosage: 0.4 MILLIGRAM, BID
     Route: 048
  48. PROGRAF [Concomitant]
     Active Substance: TACROLIMUS
     Dosage: 0.8 MILLIGRAM, QD
     Route: 048
  49. PREDNISOLONE [Concomitant]
     Active Substance: PREDNISOLONE
     Indication: Liver transplant
     Dosage: 10 MILLIGRAM, BID
     Route: 048
  50. FUROSEMIDE [Concomitant]
     Active Substance: FUROSEMIDE
     Indication: Hereditary neuropathic amyloidosis
     Dosage: 20 MILLIGRAM, QD
     Route: 048
  51. FUROSEMIDE [Concomitant]
     Active Substance: FUROSEMIDE
     Dosage: 20-40 MG
     Route: 048
     Dates: start: 20220502
  52. VONOPRAZAN FUMARATE [Concomitant]
     Active Substance: VONOPRAZAN FUMARATE
     Indication: Prophylaxis
     Dosage: 1 TABLET, QD
     Route: 048
  53. LASIX [Concomitant]
     Active Substance: FUROSEMIDE
     Indication: Product used for unknown indication
     Route: 048
  54. SLOW-K [Concomitant]
     Active Substance: POTASSIUM CHLORIDE
     Indication: Hypocalcaemia
     Dosage: 600 MILLIGRAM, BID
     Route: 065
     Dates: start: 20210308
  55. ALFACALCIDOL [Concomitant]
     Active Substance: ALFACALCIDOL
     Indication: Vitamin supplementation
     Dosage: 0.5 MICROGRAM, QD
     Route: 065
     Dates: start: 20191202, end: 20210728
  56. DROXIDOPA [Concomitant]
     Active Substance: DROXIDOPA
     Indication: Orthostatic hypotension
     Dosage: 300 MILLIGRAM, TID
     Route: 065
  57. SULFAMETHOXAZOLE\TRIMETHOPRIM [Concomitant]
     Active Substance: SULFAMETHOXAZOLE\TRIMETHOPRIM
     Indication: Infection susceptibility increased
     Dosage: 1 TABLET, TWICE A WEEK
     Route: 048
  58. CERTICAN [Concomitant]
     Active Substance: EVEROLIMUS
     Indication: Prophylaxis against transplant rejection
     Dosage: 0.25 MILLIGRAM, BID
     Route: 065
  59. CELLCEPT [Concomitant]
     Active Substance: MYCOPHENOLATE MOFETIL
     Indication: Prophylaxis against transplant rejection
     Dosage: 500 MILLIGRAM, BID
     Route: 065
  60. DOBUTAMINE [Concomitant]
     Active Substance: DOBUTAMINE HYDROCHLORIDE
     Indication: Product used for unknown indication
     Dosage: 0-2?
     Route: 065
     Dates: start: 20220514, end: 20220630
  61. MILRINONE [Concomitant]
     Active Substance: MILRINONE
     Indication: Product used for unknown indication
     Dosage: 0-0.05?
     Route: 065
     Dates: start: 20220517, end: 20220613
  62. ENALAPRIL [Concomitant]
     Active Substance: ENALAPRIL
     Indication: Product used for unknown indication
     Dosage: 0.625 MILLIGRAM
     Route: 065
     Dates: start: 20220507, end: 20220508
  63. AMIODARONE HYDROCHLORIDE [Concomitant]
     Active Substance: AMIODARONE HYDROCHLORIDE
     Indication: Product used for unknown indication
     Dosage: 20-50 MG
     Route: 065
     Dates: start: 20220526
  64. FUROSEMIDE [Concomitant]
     Active Substance: FUROSEMIDE
     Indication: Cardiac failure
     Dosage: 10 MILLIGRAM, QD
     Route: 065
     Dates: start: 20201221, end: 20210525
  65. VONOPRAZAN FUMARATE [Concomitant]
     Active Substance: VONOPRAZAN FUMARATE
     Indication: Gastrooesophageal reflux disease
     Dosage: 10 MILLIGRAM, QD
     Route: 065
     Dates: start: 20201030
  66. AMIODARONE HYDROCHLORIDE [Concomitant]
     Active Substance: AMIODARONE HYDROCHLORIDE
     Indication: Cardiac failure
     Dosage: 50 MILLIGRAM, QD
     Route: 065
     Dates: start: 20210727
  67. EDOXABAN TOSYLATE [Concomitant]
     Active Substance: EDOXABAN TOSYLATE
     Indication: Atrial fibrillation
     Dosage: 30 MILLIGRAM, QD
     Route: 065
     Dates: start: 20210621
  68. DIART [Concomitant]
     Indication: Cardiac failure
     Dosage: 60 MILLIGRAM, QD
     Route: 065
     Dates: start: 20210727
  69. VYNDAQEL [Concomitant]
     Active Substance: TAFAMIDIS MEGLUMINE
     Indication: Hereditary neuropathic amyloidosis
     Dosage: 80 MILLIGRAM, QD
     Route: 065
     Dates: start: 20210723, end: 20220104

REACTIONS (5)
  - Pulmonary oedema [Recovering/Resolving]
  - Cardiac failure [Recovered/Resolved]
  - Blood pressure decreased [Recovering/Resolving]
  - Hepatic function abnormal [Not Recovered/Not Resolved]
  - Alopecia [Recovered/Resolved]

NARRATIVE: CASE EVENT DATE: 20191112
